FAERS Safety Report 20709666 (Version 1)
Quarter: 2022Q2

REPORT INFORMATION
  Report Type: Spontaneous
  Country: US (occurrence: None)
  Receive Date: 20220414
  Receipt Date: 20220414
  Transmission Date: 20220721
  Serious: Yes (Hospitalization)
  Sender: FDA-Public Use
  Company Number: None

PATIENT
  Sex: Male
  Weight: 22.7 kg

DRUGS (3)
  1. LAPINE T-LYMPHOCYTE IMMUNE GLOBULIN [Suspect]
     Active Substance: LAPINE T-LYMPHOCYTE IMMUNE GLOBULIN
     Dates: end: 20220312
  2. CYCLOPHOSPHAMIDE [Suspect]
     Active Substance: CYCLOPHOSPHAMIDE
     Dates: end: 20220321
  3. FLUDARABINE PHOSPHATE [Suspect]
     Active Substance: FLUDARABINE PHOSPHATE
     Dates: end: 20220315

REACTIONS (15)
  - Clostridium difficile colitis [None]
  - Stem cell transplant [None]
  - Anal injury [None]
  - Hypertransaminasaemia [None]
  - Transplant failure [None]
  - Haemophagocytic lymphohistiocytosis [None]
  - Inflammatory marker increased [None]
  - Abdominal distension [None]
  - Hepatosplenomegaly [None]
  - Hypofibrinogenaemia [None]
  - Serum ferritin increased [None]
  - Blood triglycerides increased [None]
  - Ammonia increased [None]
  - Hepatitis A virus test positive [None]
  - Epstein-Barr virus test positive [None]

NARRATIVE: CASE EVENT DATE: 20220327
